FAERS Safety Report 8964123 (Version 1)
Quarter: 2012Q4

REPORT INFORMATION
  Report Type: Report from Study
  Country: GR (occurrence: GR)
  Receive Date: 20121213
  Receipt Date: 20121213
  Transmission Date: 20130627
  Serious: Yes (Other)
  Sender: FDA-Public Use
  Company Number: GR-GLAXOSMITHKLINE-B0851352A

PATIENT

DRUGS (4)
  1. REVOLADE [Suspect]
     Indication: IDIOPATHIC THROMBOCYTOPENIC PURPURA
     Route: 065
  2. STEROID [Concomitant]
  3. IMMUNOGLOBULIN [Concomitant]
  4. ONCOVIN [Concomitant]

REACTIONS (3)
  - Diabetes mellitus [Unknown]
  - Hyponatraemia [Unknown]
  - Laboratory test abnormal [Unknown]
